FAERS Safety Report 5804540-X (Version None)
Quarter: 2008Q3

REPORT INFORMATION
  Report Type: 
  Country: None (occurrence: None)
  Receive Date: 20080707
  Receipt Date: 20080707
  Transmission Date: 20090109
  Serious: Yes (Other)
  Sender: FDA-Public Use
  Company Number: None

PATIENT
  Age: 59 Year
  Sex: Female
  Weight: 68.0396 kg

DRUGS (1)
  1. ARIMIDEX [Suspect]
     Indication: BREAST CANCER
     Dosage: ONE TABLET ONCE DAILY PO
     Route: 048
     Dates: start: 20070801, end: 20080704

REACTIONS (7)
  - ABNORMAL SENSATION IN EYE [None]
  - AGGRESSION [None]
  - DEPRESSION [None]
  - HEADACHE [None]
  - ILL-DEFINED DISORDER [None]
  - INSOMNIA [None]
  - VISUAL IMPAIRMENT [None]
